FAERS Safety Report 8306551-1 (Version None)
Quarter: 2012Q2

REPORT INFORMATION
  Report Type: 
  Country: None (occurrence: None)
  Receive Date: 20120420
  Receipt Date: 20120420
  Transmission Date: 20120825
  Serious: No
  Sender: FDA-Public Use
  Company Number: None

PATIENT
  Age: 60 Year
  Sex: Male
  Weight: 68.3 kg

DRUGS (1)
  1. ZIPRASIDONE HCL [Suspect]
     Indication: MANIA
     Dosage: 20 MG ONCE IM
     Route: 030
     Dates: start: 20120323, end: 20120323

REACTIONS (4)
  - AGITATION [None]
  - COUGH [None]
  - WHEEZING [None]
  - DYSPNOEA [None]
